FAERS Safety Report 9807926 (Version 2)
Quarter: 2014Q1

REPORT INFORMATION
  Report Type: Spontaneous
  Country: JP (occurrence: None)
  Receive Date: 20140108
  Receipt Date: 20140220
  Transmission Date: 20141002
  Serious: Yes (Hospitalization, Other)
  Sender: FDA-Public Use
  Company Number: 2013-004066

PATIENT
  Age: 82 Year
  Sex: Female

DRUGS (2)
  1. ACTONEL [Suspect]
     Indication: OSTEOPOROSIS
     Dosage: ONCE MONTHLY
     Route: 048
     Dates: start: 201305
  2. WARFARIN POTASSIUM (WARFARIN POTASSIUM) [Concomitant]

REACTIONS (3)
  - Atypical pneumonia [None]
  - Palpitations [None]
  - Cardiomegaly [None]
